FAERS Safety Report 4327129-0 (Version None)
Quarter: 2004Q1

REPORT INFORMATION
  Report Type: 
  Country: None (occurrence: None)
  Receive Date: 20040330
  Receipt Date: 20040102
  Transmission Date: 20041129
  Serious: Yes (Other)
  Sender: FDA-Public Use
  Company Number: US-GLAXOSMITHKLINE-A0492409A

PATIENT
  Age: 61 Year
  Sex: Male

DRUGS (10)
  1. AVANDIA [Suspect]
     Indication: DIABETES MELLITUS INSULIN-DEPENDENT
     Route: 048
     Dates: start: 19990101
  2. PREVACID [Concomitant]
  3. PROPULSID [Concomitant]
  4. NPH INSULIN [Concomitant]
  5. REGULAR INSULIN [Concomitant]
  6. AMBIEN [Concomitant]
  7. AUGMENTIN [Concomitant]
  8. ACETAMINOPHEN + CODEINE [Concomitant]
  9. PROPRANOLOL HCL [Concomitant]
  10. SYNTHROID [Concomitant]

REACTIONS (51)
  - ABDOMINAL DISTENSION [None]
  - ANAEMIA [None]
  - ARTERIAL DISORDER [None]
  - ASCITES [None]
  - ASTHENIA [None]
  - BILE DUCT STENOSIS [None]
  - CALCULUS URINARY [None]
  - CARDIAC DISORDER [None]
  - CARDIAC VALVE DISEASE [None]
  - CHOLECYSTITIS [None]
  - CHOLESTASIS [None]
  - COMA [None]
  - DISORIENTATION [None]
  - DRUG HYPERSENSITIVITY [None]
  - EMBOLISM [None]
  - ENCEPHALOPATHY [None]
  - ENTEROCOCCAL INFECTION [None]
  - FASCIITIS [None]
  - FEMORAL ARTERIAL STENOSIS [None]
  - GASTRITIS [None]
  - GASTROINTESTINAL HAEMORRHAGE [None]
  - GENERALISED OEDEMA [None]
  - HEPATIC CIRRHOSIS [None]
  - HEPATIC ENZYME INCREASED [None]
  - HEPATIC FAILURE [None]
  - HEPATITIS A [None]
  - HEPATITIS ACUTE [None]
  - HEPATITIS FULMINANT [None]
  - HYPERSPLENISM ACQUIRED [None]
  - JAUNDICE [None]
  - LIVER TRANSPLANT [None]
  - LIVER TRANSPLANT REJECTION [None]
  - MALAISE [None]
  - NECROSIS [None]
  - OEDEMA PERIPHERAL [None]
  - PERICARDIAL EFFUSION [None]
  - PERIPHERAL VASCULAR DISORDER [None]
  - PLATELET COUNT DECREASED [None]
  - PORTAL HYPERTENSION [None]
  - REFUSAL OF TREATMENT BY PATIENT [None]
  - RENAL CYST [None]
  - RENAL FAILURE CHRONIC [None]
  - SPLEEN DISORDER [None]
  - SUBCLAVIAN ARTERY STENOSIS [None]
  - TRICUSPID VALVE INCOMPETENCE [None]
  - URINARY TRACT INFECTION [None]
  - VARICES OESOPHAGEAL [None]
  - VARICOSE VEIN [None]
  - VASCULAR OCCLUSION [None]
  - VENTRICULAR HYPERTROPHY [None]
  - WOUND INFECTION [None]
